FAERS Safety Report 16912555 (Version 1)
Quarter: 2019Q4

REPORT INFORMATION
  Report Type: Spontaneous
  Country: GB (occurrence: GB)
  Receive Date: 20191014
  Receipt Date: 20191014
  Transmission Date: 20200122
  Serious: Yes (Other)
  Sender: FDA-Public Use
  Company Number: GB-VIIV HEALTHCARE LIMITED-GB2019182196

PATIENT
  Age: 37 Year
  Sex: Male
  Weight: 98 kg

DRUGS (1)
  1. DOLUTEGRAVIR [Suspect]
     Active Substance: DOLUTEGRAVIR
     Indication: HIV INFECTION
     Dosage: 50 MG, QD
     Route: 048
     Dates: start: 20190906

REACTIONS (2)
  - Myositis [Unknown]
  - Limb discomfort [Unknown]

NARRATIVE: CASE EVENT DATE: 201909
